FAERS Safety Report 4667834-X (Version None)
Quarter: 2005Q2

REPORT INFORMATION
  Report Type: 
  Country: None (occurrence: None)
  Receive Date: 20050520
  Receipt Date: 20050513
  Transmission Date: 20051028
  Serious: Yes (Hospitalization)
  Sender: FDA-Public Use
  Company Number: GB-BRISTOL-MYERS SQUIBB COMPANY-12968236

PATIENT
  Age: 61 Year
  Sex: Female
  Weight: 70 kg

DRUGS (6)
  1. CYCLOPHOSPHAMIDE [Suspect]
     Indication: BREAST CANCER
     Dates: start: 20050118, end: 20050118
  2. PACLITAXEL [Suspect]
     Indication: BREAST CANCER
     Dates: start: 20050412, end: 20050412
  3. EPIRUBICIN [Suspect]
     Indication: BREAST CANCER
     Dates: start: 20050118, end: 20050118
  4. MOVICOL [Concomitant]
  5. LACTULOSE [Concomitant]
  6. SENNA [Concomitant]

REACTIONS (2)
  - CHEST PAIN [None]
  - PALPITATIONS [None]
